FAERS Safety Report 8908490 (Version 2)
Quarter: 2012Q4

REPORT INFORMATION
  Report Type: 
  Country: US (occurrence: US)
  Receive Date: 20121114
  Receipt Date: 20121120
  Transmission Date: 20130627
  Serious: Yes (Death)
  Sender: FDA-Public Use
  Company Number: PHHO2012US015126

PATIENT
  Age: 67 Year
  Sex: Female
  Weight: 61.7 kg

DRUGS (5)
  1. TKI258 [Suspect]
     Indication: ADENOID CYSTIC CARCINOMA
     Dosage: 500 mg, x 5 days
     Route: 048
     Dates: start: 20120730, end: 20121016
  2. SCOPALAMINIE HYDROBROMIDE [Suspect]
     Dosage: UNK
  3. ATIVAN [Suspect]
     Indication: NAUSEA
     Dosage: UNK
     Dates: end: 20120921
  4. ZOFRAN [Suspect]
     Indication: NAUSEA
  5. COMPAZINE [Suspect]
     Indication: NAUSEA

REACTIONS (3)
  - Pneumonia [Fatal]
  - Multi-organ failure [Fatal]
  - Febrile neutropenia [Fatal]
